FAERS Safety Report 15756368 (Version 1)
Quarter: 2018Q4

REPORT INFORMATION
  Report Type: Spontaneous
  Country: US (occurrence: US)
  Receive Date: 20181206
  Receipt Date: 20181206
  Transmission Date: 20190205
  Serious: Yes (Other)
  Sender: FDA-Public Use
  Company Number: None

PATIENT
  Age: 45 Year
  Sex: Female
  Weight: 85.7 kg

DRUGS (23)
  1. PROPOFOL. [Concomitant]
     Active Substance: PROPOFOL
     Dates: start: 20181107, end: 20181107
  2. METRONIDAZOLE. [Concomitant]
     Active Substance: METRONIDAZOLE
     Dates: start: 20181107, end: 20181107
  3. NEOMYCIN. [Concomitant]
     Active Substance: NEOMYCIN
  4. DEXMEDETOMIDINE. [Concomitant]
     Active Substance: DEXMEDETOMIDINE
     Dates: start: 20181107, end: 20181107
  5. BUPIVACAINE. [Concomitant]
     Active Substance: BUPIVACAINE
     Dates: start: 20181107, end: 20181107
  6. ROCURONIUM [Suspect]
     Active Substance: ROCURONIUM BROMIDE
     Indication: GENERAL ANAESTHESIA
     Route: 042
     Dates: start: 20181107, end: 20181107
  7. PHENYLEPHRINE [Concomitant]
     Active Substance: PHENYLEPHRINE\PHENYLEPHRINE HYDROCHLORIDE
     Dates: start: 20181107, end: 20181107
  8. DEXAMETHASONE. [Concomitant]
     Active Substance: DEXAMETHASONE
     Dates: start: 20181107, end: 20181107
  9. METHYLENE BLUE. [Concomitant]
     Active Substance: METHYLENE BLUE
     Dates: start: 20181107, end: 20181107
  10. CEFAZOLIN [Concomitant]
     Active Substance: CEFAZOLIN
     Dates: start: 20181107, end: 20181107
  11. SCOPOLAMINE [Concomitant]
     Active Substance: SCOPOLAMINE
     Dates: start: 20181107, end: 20181107
  12. MIDAZOLAM [Concomitant]
     Active Substance: MIDAZOLAM HYDROCHLORIDE
     Dates: start: 20181107, end: 20181107
  13. EPHEDRINE. [Concomitant]
     Active Substance: EPHEDRINE
     Dates: start: 20181107, end: 20181107
  14. LACTATED RINGERS SOLUTION [Concomitant]
     Active Substance: CALCIUM CHLORIDE\POTASSIUM CHLORIDE\SODIUM CHLORIDE\SODIUM LACTATE
     Dates: start: 20181107, end: 20181107
  15. TRIAMCINOLONE [Concomitant]
     Active Substance: TRIAMCINOLONE
  16. ROCURONIUM [Suspect]
     Active Substance: ROCURONIUM BROMIDE
     Indication: PARALYSIS
     Route: 042
     Dates: start: 20181107, end: 20181107
  17. ONDANSETRON [Concomitant]
     Active Substance: ONDANSETRON
     Dates: start: 20181107, end: 20181107
  18. SUGAMMADEX [Concomitant]
     Active Substance: SUGAMMADEX
     Dates: start: 20181107, end: 20181107
  19. HYDROMORPHONE [Concomitant]
     Active Substance: HYDROMORPHONE
     Dates: start: 20181107, end: 20181107
  20. ACETAMINOPHEN. [Concomitant]
     Active Substance: ACETAMINOPHEN
  21. LIDOCAINE. [Concomitant]
     Active Substance: LIDOCAINE
     Dates: start: 20181107, end: 20181107
  22. KETAMINE [Concomitant]
     Active Substance: KETAMINE
     Dates: start: 20181107, end: 20181107
  23. ESMOLOL [Concomitant]
     Active Substance: ESMOLOL HYDROCHLORIDE
     Dates: start: 20181107, end: 20181107

REACTIONS (1)
  - Drug effect decreased [None]

NARRATIVE: CASE EVENT DATE: 20181107
